FAERS Safety Report 25690326 (Version 1)
Quarter: 2025Q3

REPORT INFORMATION
  Report Type: Spontaneous
  Country: US (occurrence: None)
  Receive Date: 20250816
  Receipt Date: 20250816
  Transmission Date: 20251021
  Serious: Yes (Hospitalization)
  Sender: FDA-CTU
  Company Number: None

PATIENT
  Age: 67 Year
  Sex: Female
  Weight: 83.6 kg

DRUGS (3)
  1. CYTARABINE [Suspect]
     Active Substance: CYTARABINE
  2. METHOTREXATE [Suspect]
     Active Substance: METHOTREXATE
  3. PONATINIB [Suspect]
     Active Substance: PONATINIB

REACTIONS (9)
  - Sepsis [None]
  - Abdominal infection [None]
  - Febrile neutropenia [None]
  - Blood pressure decreased [None]
  - Blood culture positive [None]
  - Escherichia infection [None]
  - Diverticulitis [None]
  - Immunodeficiency [None]
  - Colitis [None]

NARRATIVE: CASE EVENT DATE: 20231105
